FAERS Safety Report 6204184-4 (Version None)
Quarter: 2009Q2

REPORT INFORMATION
  Report Type: 
  Country: None (occurrence: None)
  Receive Date: 20090518
  Receipt Date: 20090204
  Transmission Date: 20091009
  Serious: No
  Sender: FDA-Public Use
  Company Number: WAES 0902USA00585

PATIENT
  Age: 64 Year
  Sex: Female

DRUGS (2)
  1. JANUVIA [Suspect]
     Dosage: 50 MG/DAILY/PO
     Route: 048
     Dates: start: 20081001
  2. GLUCOTROL [Concomitant]

REACTIONS (6)
  - BLOOD GLUCOSE INCREASED [None]
  - DIZZINESS POSTURAL [None]
  - DYSPHAGIA [None]
  - RENAL DISORDER [None]
  - TINNITUS [None]
  - TREMOR [None]
